FAERS Safety Report 9703018 (Version 2)
Quarter: 2014Q2

REPORT INFORMATION
  Report Type: Spontaneous
  Country: DE (occurrence: DE)
  Receive Date: 20131122
  Receipt Date: 20140627
  Transmission Date: 20141212
  Serious: Yes (Hospitalization, Other)
  Sender: FDA-Public Use
  Company Number: DE-009507513-1311DEU007633

PATIENT
  Age: 49 Year
  Sex: Male
  Weight: 124 kg

DRUGS (3)
  1. JANUMET [Suspect]
     Indication: TYPE 2 DIABETES MELLITUS
     Dosage: STRENGTH: 50/1000, DAILY DOSE REPORTED AS ^2X1^
     Route: 048
     Dates: start: 201205, end: 201309
  2. VALSARTAN [Concomitant]
     Indication: HYPERTENSION
     Dosage: STRENGTH 80 UNITS NOT REPORTED
  3. PANTOZOL [Concomitant]
     Dosage: STRENGTH 20

REACTIONS (1)
  - Haemolytic anaemia [Recovering/Resolving]
